FAERS Safety Report 8315923 (Version 5)
Quarter: 2012Q4

REPORT INFORMATION
  Report Type: 
  Country: CA (occurrence: CA)
  Receive Date: 20111229
  Receipt Date: 20121207
  Transmission Date: 20130627
  Serious: Yes (Hospitalization, Other)
  Sender: FDA-Public Use
  Company Number: PHHY2011CA111785

PATIENT
  Age: 23 Year
  Sex: Male

DRUGS (2)
  1. GILENYA [Suspect]
     Indication: RELAPSING-REMITTING MULTIPLE SCLEROSIS
     Dosage: 0.5 mg, Daily
     Route: 048
     Dates: start: 20111205
  2. GILENYA [Suspect]
     Dosage: 0.5 mg, UNK
     Route: 048
     Dates: start: 201201, end: 20120516

REACTIONS (5)
  - Pancreatitis [Unknown]
  - Cholelithiasis [Unknown]
  - Cholecystitis [Unknown]
  - Abdominal pain [Unknown]
  - Hepatic enzyme increased [Recovered/Resolved]
